FAERS Safety Report 9516492 (Version 1)
Quarter: 2013Q1

REPORT INFORMATION
  Report Type: Spontaneous
  Country: US (occurrence: None)
  Receive Date: 20130305
  Receipt Date: 20130305
  Transmission Date: 20140127
  Serious: Yes (Hospitalization)
  Sender: FDA-Public Use
  Company Number: 163-21880-12081319

PATIENT
  Age: 47 Year
  Sex: Male

DRUGS (1)
  1. REVLIMID (LENALIDOMIDE) (25 MILLIGRAM, CAPSULES) [Suspect]
     Indication: MYELODYSPLASTIC SYNDROME
     Dosage: 25 MG, 1 IN 1 D, PO
     Route: 048
     Dates: start: 200811

REACTIONS (2)
  - Renal failure [None]
  - Plasma cell myeloma [None]
